FAERS Safety Report 23799009 (Version 1)
Quarter: 2024Q2

REPORT INFORMATION
  Report Type: Spontaneous
  Country: US (occurrence: None)
  Receive Date: 20240427
  Receipt Date: 20240427
  Transmission Date: 20240716
  Serious: Yes (Hospitalization)
  Sender: FDA-Public Use
  Company Number: None

PATIENT
  Age: 43 Year
  Sex: Male

DRUGS (2)
  1. LIRAGLUTIDE [Suspect]
     Active Substance: LIRAGLUTIDE
     Indication: Obesity
     Dosage: 3 MG EVERY DAY SQ?
     Route: 058
     Dates: start: 20230412, end: 20230418
  2. LIRAGLUTIDE [Suspect]
     Active Substance: LIRAGLUTIDE
     Indication: Weight decreased

REACTIONS (12)
  - Nausea [None]
  - Vomiting [None]
  - Diarrhoea [None]
  - Chest pain [None]
  - Hypovolaemia [None]
  - Hypophagia [None]
  - Decreased appetite [None]
  - Self-medication [None]
  - Therapy change [None]
  - Therapy interrupted [None]
  - Abdominal discomfort [None]
  - Syncope [None]

NARRATIVE: CASE EVENT DATE: 20230418
